FAERS Safety Report 15984249 (Version 1)
Quarter: 2019Q1

REPORT INFORMATION
  Report Type: Spontaneous
  Country: US (occurrence: US)
  Receive Date: 20190219
  Receipt Date: 20190219
  Transmission Date: 20190418
  Serious: Yes (Hospitalization, Other)
  Sender: FDA-Public Use
  Company Number: US-ALEMBIC PHARMACUETICALS LIMITED-2019SCAL000088

PATIENT

DRUGS (3)
  1. ACYCLOVIR. [Suspect]
     Active Substance: ACYCLOVIR
     Dosage: 800 MILLIGRAM, QID
  2. ACYCLOVIR. [Suspect]
     Active Substance: ACYCLOVIR
     Dosage: 5 MILLIGRAM/KILOGRAM, OD
  3. ACYCLOVIR. [Suspect]
     Active Substance: ACYCLOVIR
     Indication: HERPES ZOSTER
     Dosage: 800 MILLIGRAM 5 TIMES A DAY
     Route: 048

REACTIONS (17)
  - Myoclonus [Recovering/Resolving]
  - Confusional state [Recovering/Resolving]
  - Condition aggravated [Recovering/Resolving]
  - Peripheral swelling [Unknown]
  - Disorientation [Recovering/Resolving]
  - Myositis [Unknown]
  - Neurological symptom [Recovering/Resolving]
  - Hyporesponsive to stimuli [Recovering/Resolving]
  - Cellulitis [Unknown]
  - Lethargy [Recovering/Resolving]
  - Neurotoxicity [Recovering/Resolving]
  - Pain in extremity [Unknown]
  - Erythema [Unknown]
  - Mental status changes [Recovering/Resolving]
  - Diarrhoea [Unknown]
  - Dizziness [Recovering/Resolving]
  - Toxicity to various agents [Recovering/Resolving]
